FAERS Safety Report 6079956-X (Version None)
Quarter: 2009Q1

REPORT INFORMATION
  Report Type: 
  Country: None (occurrence: None)
  Receive Date: 20090217
  Receipt Date: 20090205
  Transmission Date: 20090719
  Serious: Yes (Other)
  Sender: FDA-Public Use
  Company Number: TR-PFIZER INC-2009165568

PATIENT

DRUGS (7)
  1. IRINOTECAN HCL [Suspect]
     Indication: RECTAL CANCER
     Dosage: 180 MG/M2, DAYS 1 AND 15 OF 28
  2. OXALIPLATIN [Suspect]
     Indication: RECTAL CANCER
     Dosage: 130 MG/M2, DAY 1 OF 21
  3. LEUCOVORIN CALCIUM [Concomitant]
     Indication: RECTAL CANCER
     Dosage: 200 MG/M2
  4. FLUOROURACIL [Concomitant]
     Indication: RECTAL CANCER
     Dosage: 400 MG/M2, UNK
     Route: 040
  5. FLUOROURACIL [Concomitant]
     Dosage: 600 MG/M2, DAYS 1, 2 AND 15, 16 OF 28
     Route: 041
  6. RALTITREXED [Concomitant]
     Indication: RECTAL CANCER
     Dosage: 3 MG/M2, DAY 1 OF 21
  7. CAPECITABINE [Concomitant]
     Indication: RECTAL CANCER
     Dosage: 2500 MG/M2, DAYS 1-4 OF 21

REACTIONS (2)
  - CHRONIC MYELOID LEUKAEMIA [None]
  - NEOPLASM MALIGNANT [None]
